FAERS Safety Report 5795116-1 (Version None)
Quarter: 2008Q2

REPORT INFORMATION
  Report Type: 
  Country: None (occurrence: None)
  Receive Date: 20080630
  Receipt Date: 20080421
  Transmission Date: 20081010
  Serious: Yes (Other)
  Sender: FDA-Public Use
  Company Number: US-BRISTOL-MYERS SQUIBB COMPANY-14154231

PATIENT
  Age: 53 Year
  Sex: Female

DRUGS (1)
  1. ORENCIA [Suspect]
     Dosage: MOST RECENT INFUSION GIVEN ON 14-APR-2008 AT A DOSE OF 750 MG.
     Route: 042
     Dates: start: 20070625

REACTIONS (1)
  - MALIGNANT MELANOMA [None]
